FAERS Safety Report 10802856 (Version 6)
Quarter: 2017Q3

REPORT INFORMATION
  Report Type: Spontaneous
  Country: US (occurrence: US)
  Receive Date: 20150217
  Receipt Date: 20170928
  Transmission Date: 20171127
  Serious: No
  Sender: FDA-Public Use
  Company Number: US-PFIZER INC-2015056982

PATIENT
  Age: 67 Year
  Sex: Female
  Weight: 63.5 kg

DRUGS (14)
  1. XALKORI [Suspect]
     Active Substance: CRIZOTINIB
     Dosage: 250 MG, 2X/DAY
     Dates: start: 2009
  2. RESVERATROL [Concomitant]
     Active Substance: DIETARY SUPPLEMENT\RESVERATROL
     Indication: EYE DISORDER
     Dosage: 1 CAP WITH WATER, DAILY
     Route: 048
  3. ASPIRIN. [Concomitant]
     Active Substance: ASPIRIN
     Dosage: 81 MG, 2X/DAY
  4. FOSAMAX [Concomitant]
     Active Substance: ALENDRONATE SODIUM
     Indication: BONE DISORDER
     Dosage: 70 MG, WEEKLY
     Route: 048
  5. ASTAXANTHIN/OMEGA-3 FATTY ACIDS [Concomitant]
     Indication: EYE DISORDER
     Dosage: 6 MG, DAILY
  6. VISION WITH LUTEIN [Concomitant]
     Indication: EYE DISORDER
     Dosage: 1 CAPSULE DAILY
     Route: 048
  7. XALKORI [Suspect]
     Active Substance: CRIZOTINIB
     Indication: LUNG NEOPLASM MALIGNANT
     Dosage: 200 MG, 2X/DAY
     Route: 048
     Dates: start: 2008
  8. FOSAMAX [Concomitant]
     Active Substance: ALENDRONATE SODIUM
     Indication: OSTEOPENIA
     Dosage: 70 MG, 1X/DAY
     Dates: start: 2010, end: 2015
  9. PROCERA AVH [Concomitant]
     Indication: MEMORY IMPAIRMENT
     Dosage: UNK UNK, 2X/DAY
     Route: 048
  10. DERMEX P [Concomitant]
     Dosage: 1 DF, DAILY
  11. XALKORI [Suspect]
     Active Substance: CRIZOTINIB
     Dosage: 400 MG, ALTERNATE DAY (TAKING TWO 200MG TABLETS ONE DAY AND THEN ONE 200MG TABLET THE NEXT)
  12. XALKORI [Suspect]
     Active Substance: CRIZOTINIB
     Dosage: 200 MG, ALTERNATE DAY (TWO 200MG TABLETS ONE DAY AND THEN ONE 200MG TABLET THE NEXT)
     Dates: start: 2009
  13. PRODHA EYE [Concomitant]
     Indication: EYE DISORDER
     Dosage: 2000 MG, DAILY (1000MG, 2DF, DAILY )
  14. CITRACAL + D [Concomitant]
     Active Substance: CALCIUM CITRATE\VITAMIN D
     Dosage: 2 DF, 2X/DAY
     Route: 048

REACTIONS (7)
  - Tinnitus [Not Recovered/Not Resolved]
  - Swelling [Recovered/Resolved]
  - Intervertebral disc protrusion [Not Recovered/Not Resolved]
  - Visual impairment [Not Recovered/Not Resolved]
  - Hypoacusis [Not Recovered/Not Resolved]
  - Body height decreased [Unknown]
  - Neoplasm progression [Unknown]

NARRATIVE: CASE EVENT DATE: 2009
